FAERS Safety Report 4629962-4 (Version None)
Quarter: 2005Q2

REPORT INFORMATION
  Report Type: 
  Country: None (occurrence: None)
  Receive Date: 20050408
  Receipt Date: 20050401
  Transmission Date: 20051028
  Serious: Yes (Disabling)
  Sender: FDA-Public Use
  Company Number: GB-MERCK-0504USA00194

PATIENT
  Age: 55 Year
  Sex: Female

DRUGS (5)
  1. PRINIVIL [Suspect]
     Indication: HYPERTENSION
     Route: 048
     Dates: start: 20041207, end: 20050224
  2. ATENOLOL AND CHLORTHALIDONE [Concomitant]
     Indication: HYPERTENSION
     Route: 048
     Dates: start: 19980706
  3. LOFEPRAMINE HYDROCHLORIDE [Concomitant]
     Route: 048
     Dates: start: 19990629
  4. PREMARIN [Concomitant]
     Indication: HORMONE REPLACEMENT THERAPY
     Route: 048
     Dates: start: 19971216
  5. ZOLMITRIPTAN [Concomitant]
     Indication: MIGRAINE
     Route: 055
     Dates: start: 20020124

REACTIONS (1)
  - MIGRAINE [None]
